FAERS Safety Report 20205522 (Version 3)
Quarter: 2022Q1

REPORT INFORMATION
  Report Type: Spontaneous
  Country: VN (occurrence: VN)
  Receive Date: 20211220
  Receipt Date: 20220110
  Transmission Date: 20220423
  Serious: Yes (Death, Other)
  Sender: FDA-Public Use
  Company Number: VN-ASTELLAS-2021US048639

PATIENT
  Age: 57 Year
  Sex: Female

DRUGS (5)
  1. TACROLIMUS [Suspect]
     Active Substance: TACROLIMUS
     Indication: Prophylaxis against transplant rejection
     Route: 065
     Dates: start: 20171206
  2. SOLU-MEDROL [Concomitant]
     Active Substance: METHYLPREDNISOLONE SODIUM SUCCINATE
     Indication: Prophylaxis against transplant rejection
     Route: 065
     Dates: start: 20171206
  3. MYCOPHENOLATE MOFETIL [Concomitant]
     Active Substance: MYCOPHENOLATE MOFETIL
     Indication: Prophylaxis against transplant rejection
     Route: 065
     Dates: start: 20171206
  4. BASILIXIMAB [Concomitant]
     Active Substance: BASILIXIMAB
     Indication: Prophylaxis against transplant rejection
     Dosage: UNK, UNKNOWN FREQ.
     Route: 065
     Dates: start: 20171206
  5. SULPERAZONE [Concomitant]
     Active Substance: CEFOPERAZONE SODIUM\SULBACTAM SODIUM
     Indication: Prophylaxis against transplant rejection
     Route: 042
     Dates: start: 20171206

REACTIONS (9)
  - Pancreatitis acute [Fatal]
  - Multiple organ dysfunction syndrome [Fatal]
  - Septic shock [Fatal]
  - Pancreatitis necrotising [Fatal]
  - Blood urea increased [Not Recovered/Not Resolved]
  - Blood creatinine increased [Not Recovered/Not Resolved]
  - Jaundice [Not Recovered/Not Resolved]
  - Hemiplegia [Not Recovered/Not Resolved]
  - Respiratory failure [Not Recovered/Not Resolved]

NARRATIVE: CASE EVENT DATE: 20171201
